FAERS Safety Report 7401885-7 (Version None)
Quarter: 2011Q2

REPORT INFORMATION
  Report Type: 
  Country: None (occurrence: None)
  Receive Date: 20110408
  Receipt Date: 20110405
  Transmission Date: 20111010
  Serious: Yes (Death, Hospitalization, Other)
  Sender: FDA-Public Use
  Company Number: IT-BAYER-201042961GPV

PATIENT
  Sex: Male

DRUGS (31)
  1. NEXAVAR [Suspect]
     Indication: HEPATIC NEOPLASM MALIGNANT
     Dosage: 800 MG (DAILY DOSE), , ORAL
     Route: 048
     Dates: start: 20100903, end: 20100916
  2. FUROSEMIDE [Concomitant]
     Indication: POLYURIA
  3. RANITIDINE [Concomitant]
     Dosage: IN 250 ML OF PHYSIOLOGICAL SOLUTION
     Route: 042
     Dates: start: 20101005
  4. RED BLOOD CELLS [Concomitant]
     Dosage: 1 U (DAILY DOSE), ,
     Dates: start: 20101005
  5. SODIUM BICARBONATE [Concomitant]
     Indication: HYPERKALAEMIA
     Dosage: 1.4 %
  6. AMPICILLIN [Concomitant]
  7. PROPOFOL [Concomitant]
     Route: 040
     Dates: start: 20101006
  8. KAYEXALATE [Concomitant]
     Route: 054
     Dates: start: 20101006
  9. TICLID [Concomitant]
     Indication: ANGIOPATHY
     Dosage: 500 MG (DAILY DOSE), ,
     Dates: start: 20090101
  10. VENTOLIN [Concomitant]
     Indication: HYPERKALAEMIA
     Dosage: 1 PUFF(S) (DAILY DOSE), ,
     Dates: start: 20101006
  11. SANDOSTATIN [Concomitant]
     Dosage: 6 VIALS OF 0.1 MG IN 500 ML OF PHYSIOLOGICAL SOLUTION BY CONTINUOUS INFUSION IN 24 HOURS
     Dates: start: 20101005
  12. OMEPRAZOLE [Concomitant]
     Route: 042
  13. VENTOLIN [Concomitant]
     Dosage: 2 VIALS
     Dates: start: 20101007, end: 20101007
  14. NEXAVAR [Suspect]
     Route: 048
     Dates: start: 20100920, end: 20101007
  15. INDERAL [Concomitant]
     Indication: PORTAL HYPERTENSION
     Dosage: 20 MG (DAILY DOSE), ,
     Dates: start: 20100903
  16. NOREPINEPHRINE BITARTRATE [Concomitant]
  17. SULBACTAM [Concomitant]
  18. FUROSEMIDE [Concomitant]
     Indication: LIVER DISORDER
     Dosage: 25 MG (DAILY DOSE), ,
     Dates: start: 20050101
  19. MEGACE [Concomitant]
     Indication: CACHEXIA
     Dosage: 160 MG (DAILY DOSE), ,
     Dates: start: 20100903
  20. BLOOD TRANSFUSION, AUXILIARY PRODUCTS [Concomitant]
     Dosage: 2 U (DAILY DOSE), ,
  21. GLUCOSE [Concomitant]
     Indication: FLUID REPLACEMENT
     Dosage: 5 %
  22. SODIUM BICARBONATE [Concomitant]
     Indication: ACIDOSIS
     Dosage: 8.4%
     Dates: start: 20101007, end: 20101007
  23. METRONIDAZOLE [Concomitant]
  24. MORPHINE [Concomitant]
     Dates: start: 20101006
  25. FRESH FROZEN PLASMA [Concomitant]
     Dosage: 2 U (DAILY DOSE), ,
     Dates: start: 20101007, end: 20101007
  26. NEXAVAR [Suspect]
     Dosage: 400 MG (DAILY DOSE), , ORAL
     Route: 048
     Dates: start: 20100916, end: 20100920
  27. HUMALOG [Concomitant]
     Indication: DIABETES MELLITUS
     Dosage: 12 U (DAILY DOSE), ,
     Dates: start: 20100902
  28. RED BLOOD CELLS [Concomitant]
     Dosage: 2 U (DAILY DOSE), ,
     Dates: start: 20101007
  29. GELFUSINE [PLASMA PROTEIN SOLUTION] [Concomitant]
     Dosage: 150 CC
  30. ANTIHISTAMINES [Concomitant]
     Dates: start: 20101006
  31. ETHACRYNIC ACID [Concomitant]
     Dosage: 1 VIAL
     Dates: start: 20101006

REACTIONS (8)
  - HEPATIC FUNCTION ABNORMAL [None]
  - HEPATIC FAILURE [None]
  - INSOMNIA [None]
  - PSYCHOMOTOR HYPERACTIVITY [None]
  - DIARRHOEA [None]
  - DEPRESSION [None]
  - GASTROINTESTINAL HAEMORRHAGE [None]
  - JAUNDICE [None]
